FAERS Safety Report 4915158-5 (Version None)
Quarter: 2006Q1

REPORT INFORMATION
  Report Type: 
  Country: None (occurrence: None)
  Receive Date: 20060217
  Receipt Date: 20060105
  Transmission Date: 20060701
  Serious: Yes (Congenital Anomaly, Other)
  Sender: FDA-Public Use
  Company Number: US-GILEAD-2006-0009081

PATIENT
  Sex: Male
  Weight: 2.3 kg

DRUGS (3)
  1. TRUVADA [Suspect]
     Route: 064
     Dates: start: 20050720, end: 20050723
  2. KALETRA [Concomitant]
     Dosage: 1000 MG/DAY
     Route: 064
     Dates: start: 20050720, end: 20050723
  3. SULFAMETHOXAZOLE + TRIMETHOPRIM [Concomitant]
     Dates: start: 20050720

REACTIONS (3)
  - DRUG EXPOSURE DURING PREGNANCY [None]
  - PREMATURE BABY [None]
  - SKULL MALFORMATION [None]
